FAERS Safety Report 13373569 (Version 1)
Quarter: 2017Q1

REPORT INFORMATION
  Report Type: Spontaneous
  Country: None (occurrence: US)
  Receive Date: 20170327
  Receipt Date: 20170327
  Transmission Date: 20170429
  Serious: No
  Sender: FDA-Public Use
  Company Number: US-HILL DERMACEUTICALS, INC.-1064679

PATIENT
  Age: 40 Year
  Sex: Female

DRUGS (7)
  1. TEGRETOL [Concomitant]
     Active Substance: CARBAMAZEPINE
     Route: 048
  2. ACETAMINOPHEN AND CODEINE [Concomitant]
     Active Substance: ACETAMINOPHEN\CODEINE PHOSPHATE
     Route: 048
  3. SEROQUEL [Concomitant]
     Active Substance: QUETIAPINE FUMARATE
     Route: 048
  4. FLUOCINOLONE ACETONIDE 0.01% TOPICAL OIL (SCALP OIL) [Suspect]
     Active Substance: FLUOCINOLONE ACETONIDE
     Indication: PRURITUS
     Route: 061
     Dates: start: 20161117
  5. BUSPAR [Concomitant]
     Active Substance: BUSPIRONE HYDROCHLORIDE
     Route: 048
  6. KLONOPIN [Concomitant]
     Active Substance: CLONAZEPAM
     Route: 048
  7. HALCION [Concomitant]
     Active Substance: TRIAZOLAM
     Route: 048

REACTIONS (6)
  - Application site pruritus [Recovered/Resolved]
  - Throat tightness [None]
  - Acne [Unknown]
  - Oesophageal disorder [Unknown]
  - Dysgeusia [Unknown]
  - Erythema [Unknown]
